FAERS Safety Report 21254810 (Version 2)
Quarter: 2022Q3

REPORT INFORMATION
  Report Type: Spontaneous
  Country: US (occurrence: US)
  Receive Date: 20220825
  Receipt Date: 20220906
  Transmission Date: 20221027
  Serious: Yes (Hospitalization)
  Sender: FDA-Public Use
  Company Number: US-TEVA-2022-US-2066513

PATIENT
  Age: 56 Year
  Sex: Male

DRUGS (1)
  1. PREDNISONE [Suspect]
     Active Substance: PREDNISONE
     Indication: Asthma
     Dosage: 12.5 MILLIGRAM DAILY;
     Route: 048

REACTIONS (3)
  - Hypogammaglobulinaemia [Recovered/Resolved]
  - Infection [Unknown]
  - Asthma [Unknown]
